FAERS Safety Report 10021133 (Version 2)
Quarter: 2014Q1

REPORT INFORMATION
  Report Type: Spontaneous
  Country: FR (occurrence: None)
  Receive Date: 20140313
  Receipt Date: 20140326
  Transmission Date: 20141002
  Serious: Yes (Hospitalization)
  Sender: FDA-Public Use
  Company Number: AUR-APL-2014-02436

PATIENT
  Age: 37 Year
  Sex: Male

DRUGS (6)
  1. CEFPODOXIME [Suspect]
     Indication: INFLUENZA LIKE ILLNESS
     Dosage: 400MG (200MG, 2 IN 1 D), UNKNOWN
     Route: 048
     Dates: start: 20140203, end: 20140210
  2. CARBOLEVURE [Suspect]
     Indication: PRODUCT USED FOR UNKNOWN INDICATION
     Route: 048
     Dates: start: 20140110, end: 20140210
  3. EFEXOR [Suspect]
     Indication: DEPRESSION
     Dosage: 37.5 MG (37.5 MG, 1 IN 1 D), ORAL
     Route: 048
     Dates: start: 201312, end: 20140210
  4. NASONEX (MOMETASONE FUROATE) [Suspect]
     Indication: INFLUENZA LIKE ILLNESS
     Route: 045
     Dates: start: 20140110, end: 20140210
  5. PARACETAMOL (PARACETAMOL) [Suspect]
     Indication: INFLUENZA LIKE ILLNESS
     Dosage: 3 GM (1 GM, 3 IN 1 D), ORAL
     Route: 048
     Dates: start: 20140203, end: 20140210
  6. PULMODEXANE [Suspect]
     Indication: INFLUENZA LIKE ILLNESS
     Route: 048
     Dates: start: 20140203, end: 20140210

REACTIONS (1)
  - Pancreatitis acute [None]
